FAERS Safety Report 22332510 (Version 2)
Quarter: 2023Q2

REPORT INFORMATION
  Report Type: Spontaneous
  Country: US (occurrence: US)
  Receive Date: 20230517
  Receipt Date: 20230519
  Transmission Date: 20230721
  Serious: No
  Sender: FDA-Public Use
  Company Number: US-SA-SAC20230516000103

PATIENT
  Age: 32 Year
  Sex: Female

DRUGS (5)
  1. DUPIXENT [Suspect]
     Active Substance: DUPILUMAB
     Indication: Dermatitis atopic
     Dosage: 300 MG, QOW
     Route: 058
     Dates: start: 20221022
  2. FLOVENT [Concomitant]
     Active Substance: FLUTICASONE PROPIONATE
  3. KENALOG [Concomitant]
     Active Substance: TRIAMCINOLONE ACETONIDE
  4. METHYLPREDNISOLONE [Concomitant]
     Active Substance: METHYLPREDNISOLONE
  5. ALBUTEROL [Concomitant]
     Active Substance: ALBUTEROL
     Dosage: UNK

REACTIONS (8)
  - Alopecia [Unknown]
  - Photosensitivity reaction [Unknown]
  - Sleep disorder [Unknown]
  - Dry eye [Unknown]
  - Eczema [Unknown]
  - Product dose omission issue [Unknown]
  - Drug ineffective [Unknown]
  - Therapeutic response decreased [Unknown]
